FAERS Safety Report 8905949 (Version 2)
Quarter: 2013Q2

REPORT INFORMATION
  Report Type: Spontaneous
  Country: US (occurrence: US)
  Receive Date: 20121109
  Receipt Date: 20130409
  Transmission Date: 20140414
  Serious: Yes (Hospitalization)
  Sender: FDA-Public Use
  Company Number: US-GLAXOSMITHKLINE-A0899215A

PATIENT
  Age: 63 Year
  Sex: Female

DRUGS (1)
  1. AVANDIA [Suspect]
     Indication: DIABETES MELLITUS
     Dosage: 4MG PER DAY
     Route: 048
     Dates: start: 2005, end: 200704

REACTIONS (6)
  - Cerebrovascular accident [Unknown]
  - Syncope [Unknown]
  - Headache [Unknown]
  - Hypertension [Unknown]
  - Vomiting [Unknown]
  - Abdominal pain upper [Unknown]
